FAERS Safety Report 23070558 (Version 1)
Quarter: 2023Q4

REPORT INFORMATION
  Report Type: Report from Study
  Country: US (occurrence: US)
  Receive Date: 20231016
  Receipt Date: 20231016
  Transmission Date: 20240109
  Serious: Yes (Other)
  Sender: FDA-Public Use
  Company Number: US-ABBVIE-5450496

PATIENT
  Sex: Male

DRUGS (3)
  1. VENCLEXTA [Suspect]
     Active Substance: VENETOCLAX
     Indication: Acute myeloid leukaemia (in remission)
     Dosage: FORM STRENGTH: 100 MG?2 TABS ON DAY 2 WITH FOOD AND FULL GLASS OF WATER. START WHEN DIRECTED
     Route: 048
  2. VENCLEXTA [Suspect]
     Active Substance: VENETOCLAX
     Indication: Acute myeloid leukaemia (in remission)
     Dosage: FORM STRENGTH: 100 MG?4 TABS DAILY FOR 14 DAYS WITH FOOD AND FULL GLASS OF WATER. START WHEN DIRE...
     Route: 048
     Dates: end: 202309
  3. VENCLEXTA [Suspect]
     Active Substance: VENETOCLAX
     Indication: Acute myeloid leukaemia (in remission)
     Dosage: DAY ONE?FORM STRENGTH: 100 MG?TAKE 1 TABLET BY MOUTH ON DAY 1 WITH FOOD AND FULL GLASS OF WATER. ...
     Route: 048

REACTIONS (2)
  - Stem cell transplant [Unknown]
  - Asthenia [Unknown]
